FAERS Safety Report 19668433 (Version 1)
Quarter: 2021Q3

REPORT INFORMATION
  Report Type: Spontaneous
  Country: IT (occurrence: IT)
  Receive Date: 20210806
  Receipt Date: 20210806
  Transmission Date: 20211014
  Serious: Yes (Other)
  Sender: FDA-Public Use
  Company Number: IT-PFIZER INC-202100947084

PATIENT
  Age: 34 Year
  Sex: Male

DRUGS (9)
  1. HALOPERIDOL. [Suspect]
     Active Substance: HALOPERIDOL
     Dosage: UNK
     Route: 065
     Dates: start: 2012
  2. HALOPERIDOL. [Suspect]
     Active Substance: HALOPERIDOL
     Dosage: 2 MG, XXX X 2
     Route: 065
     Dates: start: 2014
  3. OLANZAPINE. [Suspect]
     Active Substance: OLANZAPINE
     Dosage: 20 MG, 1X/DAY
     Route: 065
  4. ABILIFY [Suspect]
     Active Substance: ARIPIPRAZOLE
     Indication: PSYCHOTIC DISORDER
     Dosage: 15 MG, 1 X 2
     Route: 065
     Dates: start: 2014
  5. OXCARBAZEPINE. [Suspect]
     Active Substance: OXCARBAZEPINE
     Dosage: 600 MG, 1 X 2
     Route: 065
     Dates: start: 2014
  6. LORAZEPAM. [Suspect]
     Active Substance: LORAZEPAM
     Dosage: 2.5 MG, 1 X 3
     Route: 065
     Dates: start: 2014
  7. TRIAZOLAM. [Suspect]
     Active Substance: TRIAZOLAM
     Dosage: 0.25 MG, 1X/DAY
     Route: 065
     Dates: start: 2012
  8. ABILIFY [Suspect]
     Active Substance: ARIPIPRAZOLE
     Dosage: 10 MG
     Route: 065
  9. BIPERIDEN [Suspect]
     Active Substance: BIPERIDEN
     Dosage: 4 MG, 1X/DAY
     Route: 065
     Dates: start: 2014

REACTIONS (2)
  - Product use in unapproved indication [Unknown]
  - Blood creatine phosphokinase increased [Not Recovered/Not Resolved]
